FAERS Safety Report 8262041-6 (Version None)
Quarter: 2012Q2

REPORT INFORMATION
  Report Type: 
  Country: None (occurrence: None)
  Receive Date: 20120405
  Receipt Date: 20120321
  Transmission Date: 20120825
  Serious: Yes (Hospitalization, Other)
  Sender: FDA-Public Use
  Company Number: PHEH2012US006724

PATIENT
  Age: 57 Year
  Sex: Female

DRUGS (2)
  1. VOLTAREN [Suspect]
     Dosage: 0.5 DF, BID
     Route: 048
  2. VOLTAREN [Suspect]
     Indication: ROTATOR CUFF SYNDROME
     Dosage: 1 DF, QID
     Route: 048

REACTIONS (6)
  - STAPHYLOCOCCAL INFECTION [None]
  - RENAL FAILURE [None]
  - OSTEOMYELITIS [None]
  - INTERVERTEBRAL DISC DEGENERATION [None]
  - COMA [None]
  - GRAND MAL CONVULSION [None]
